FAERS Safety Report 7865881-8 (Version None)
Quarter: 2011Q4

REPORT INFORMATION
  Report Type: 
  Country: None (occurrence: None)
  Receive Date: 20111028
  Receipt Date: 20110315
  Transmission Date: 20120403
  Serious: No
  Sender: FDA-Public Use
  Company Number: US-GLAXOSMITHKLINE-A0918294A

PATIENT
  Age: 70 Year
  Sex: Female

DRUGS (5)
  1. ADVAIR DISKUS 100/50 [Suspect]
     Indication: ASTHMA
     Route: 055
     Dates: start: 20080101
  2. COMBIVENT [Concomitant]
  3. OXYGEN THERAPY [Concomitant]
  4. NORVASC [Concomitant]
  5. LISINOPRIL [Concomitant]

REACTIONS (2)
  - RETCHING [None]
  - CHEST DISCOMFORT [None]
